FAERS Safety Report 16573030 (Version 4)
Quarter: 2019Q4

REPORT INFORMATION
  Report Type: Spontaneous
  Country: US (occurrence: US)
  Receive Date: 20190715
  Receipt Date: 20191011
  Transmission Date: 20200122
  Serious: Yes (Death, Other)
  Sender: FDA-Public Use
  Company Number: US-LEXICON PHARMACEUTICALS, INC-19-1606-00678

PATIENT
  Age: 80 Year
  Sex: Male

DRUGS (9)
  1. CARVEDILOL. [Concomitant]
     Active Substance: CARVEDILOL
  2. TELOTRISTAT ETHYL [Suspect]
     Active Substance: TELOTRISTAT ETHYL
     Indication: CARCINOID SYNDROME
     Route: 048
     Dates: start: 20190329
  3. WARFARIN [Concomitant]
     Active Substance: WARFARIN
  4. ALDACTONE [Concomitant]
     Active Substance: SPIRONOLACTONE
  5. FUROSEMIDE. [Concomitant]
     Active Substance: FUROSEMIDE
  6. LOSARTAN. [Concomitant]
     Active Substance: LOSARTAN
  7. SOMATULINE [Concomitant]
     Active Substance: LANREOTIDE ACETATE
  8. AMIODARONE [Concomitant]
     Active Substance: AMIODARONE
  9. PRAVASTATIN. [Concomitant]
     Active Substance: PRAVASTATIN

REACTIONS (7)
  - Abdominal distension [Not Recovered/Not Resolved]
  - Death [Fatal]
  - Hypotension [Unknown]
  - Flushing [Not Recovered/Not Resolved]
  - Cough [Unknown]
  - Atrial fibrillation [Unknown]
  - Abdominal pain [Recovered/Resolved]

NARRATIVE: CASE EVENT DATE: 20190927
